FAERS Safety Report 9881767 (Version 3)
Quarter: 2014Q2

REPORT INFORMATION
  Report Type: Report from Study
  Country: ES (occurrence: ES)
  Receive Date: 20140207
  Receipt Date: 20140414
  Transmission Date: 20141212
  Serious: Yes (Hospitalization, Other)
  Sender: FDA-Public Use
  Company Number: ES-JNJFOC-20140118626

PATIENT
  Age: 78 Year
  Sex: Male

DRUGS (1)
  1. ZYTIGA [Suspect]
     Indication: PROSTATE CANCER METASTATIC
     Route: 048
     Dates: start: 20140114, end: 20140128

REACTIONS (6)
  - Urinary tract infection [Unknown]
  - General physical health deterioration [Recovered/Resolved]
  - Blood pressure abnormal [Unknown]
  - Pyrexia [Recovered/Resolved]
  - Generalised oedema [Recovered/Resolved]
  - Renal impairment [Recovering/Resolving]
